FAERS Safety Report 19255032 (Version 2)
Quarter: 2021Q4

REPORT INFORMATION
  Report Type: Report from Study
  Country: US (occurrence: US)
  Receive Date: 20210513
  Receipt Date: 20211001
  Transmission Date: 20220303
  Serious: Yes (Hospitalization, Other)
  Sender: FDA-Public Use
  Company Number: US-TAKEDA-US202028793

PATIENT
  Sex: Male
  Weight: 132 kg

DRUGS (14)
  1. TEDUGLUTIDE [Suspect]
     Active Substance: TEDUGLUTIDE
     Indication: Crohn^s disease
     Dosage: 0.32 MILLILITER, 1X/DAY:QD
     Route: 050
  2. TEDUGLUTIDE [Suspect]
     Active Substance: TEDUGLUTIDE
     Indication: Crohn^s disease
     Dosage: 0.32 MILLILITER, 1X/DAY:QD
     Route: 050
  3. TEDUGLUTIDE [Suspect]
     Active Substance: TEDUGLUTIDE
     Indication: Crohn^s disease
     Dosage: 0.32 MILLILITER, 1X/DAY:QD
     Route: 050
  4. TEDUGLUTIDE [Suspect]
     Active Substance: TEDUGLUTIDE
     Indication: Crohn^s disease
     Dosage: 0.32 MILLILITER, 1X/DAY:QD
     Route: 050
  5. TEDUGLUTIDE [Suspect]
     Active Substance: TEDUGLUTIDE
     Indication: Malabsorption
     Dosage: 3.21 MILLIGRAM, QD
     Route: 050
  6. TEDUGLUTIDE [Suspect]
     Active Substance: TEDUGLUTIDE
     Indication: Malabsorption
     Dosage: 3.21 MILLIGRAM, QD
     Route: 050
  7. TEDUGLUTIDE [Suspect]
     Active Substance: TEDUGLUTIDE
     Indication: Malabsorption
     Dosage: 3.21 MILLIGRAM, QD
     Route: 050
  8. TEDUGLUTIDE [Suspect]
     Active Substance: TEDUGLUTIDE
     Indication: Malabsorption
     Dosage: 3.21 MILLIGRAM, QD
     Route: 050
  9. TEDUGLUTIDE [Suspect]
     Active Substance: TEDUGLUTIDE
     Dosage: 0.32 MILLILITER,QD
     Route: 042
  10. TEDUGLUTIDE [Suspect]
     Active Substance: TEDUGLUTIDE
     Dosage: 0.32 MILLILITER,QD
     Route: 042
  11. TEDUGLUTIDE [Suspect]
     Active Substance: TEDUGLUTIDE
     Dosage: 0.32 MILLILITER,QD
     Route: 042
  12. TEDUGLUTIDE [Suspect]
     Active Substance: TEDUGLUTIDE
     Dosage: 0.32 MILLILITER,QD
     Route: 042
  13. MAGNESIUM [Concomitant]
     Active Substance: MAGNESIUM
     Indication: Product used for unknown indication
     Dosage: UNK
     Route: 065
  14. LACTATED RINGERS SOLUTION [Concomitant]
     Active Substance: CALCIUM CHLORIDE\POTASSIUM CHLORIDE\SODIUM CHLORIDE\SODIUM LACTATE
     Indication: Product used for unknown indication
     Dosage: UNK
     Route: 065

REACTIONS (5)
  - Hospitalisation [Unknown]
  - Nephrolithiasis [Unknown]
  - Kidney infection [Unknown]
  - Rhinorrhoea [Unknown]
  - Multiple allergies [Unknown]
